FAERS Safety Report 17121525 (Version 1)
Quarter: 2019Q4

REPORT INFORMATION
  Report Type: Spontaneous
  Country: US (occurrence: US)
  Receive Date: 20191205
  Receipt Date: 20191205
  Transmission Date: 20200122
  Serious: Yes (Hospitalization)
  Sender: FDA-Public Use
  Company Number: None

PATIENT
  Age: 64 Year
  Sex: Female
  Weight: 61.3 kg

DRUGS (5)
  1. POLYETHYLENE GLYCOL 17G DAILY [Concomitant]
  2. GABAPENTIN 300MG DAILY [Concomitant]
  3. MEMANTINE 5MG BID [Concomitant]
  4. RIVAROXABAN [Suspect]
     Active Substance: RIVAROXABAN
     Indication: ATRIAL FIBRILLATION
     Route: 048
  5. PANTOPRAZOLE 40MG DAILY [Concomitant]

REACTIONS (10)
  - Fatigue [None]
  - Faeces discoloured [None]
  - Haemoglobin decreased [None]
  - Gastrointestinal haemorrhage [None]
  - Gastric mucosa erythema [None]
  - Haematemesis [None]
  - Biopsy oesophagus [None]
  - Asthenia [None]
  - Abdominal pain upper [None]
  - Haemorrhoids [None]

NARRATIVE: CASE EVENT DATE: 20150206
